FAERS Safety Report 13900148 (Version 1)
Quarter: 2017Q3

REPORT INFORMATION
  Report Type: Spontaneous
  Country: JP (occurrence: JP)
  Receive Date: 20170823
  Receipt Date: 20170823
  Transmission Date: 20171127
  Serious: Yes (Other)
  Sender: FDA-Public Use
  Company Number: JP-TAKEDA-2017TJP017552

PATIENT
  Age: 50 Year
  Sex: Male

DRUGS (2)
  1. NEODOPASTON [Suspect]
     Active Substance: CARBIDOPA\LEVODOPA
     Indication: PARKINSONISM
     Dosage: UNK
     Route: 048
  2. ACTOS [Suspect]
     Active Substance: PIOGLITAZONE HYDROCHLORIDE
     Indication: DIABETES MELLITUS
     Dosage: UNK UNK, QD
     Route: 048

REACTIONS (2)
  - Rhabdomyolysis [Unknown]
  - Blood creatine phosphokinase increased [Unknown]
